FAERS Safety Report 21173299 (Version 1)
Quarter: 2022Q3

REPORT INFORMATION
  Report Type: Spontaneous
  Country: US (occurrence: US)
  Receive Date: 20220804
  Receipt Date: 20220804
  Transmission Date: 20221026
  Serious: Yes (Other)
  Sender: FDA-Public Use
  Company Number: US-TEVA-2022-US-2060103

PATIENT
  Age: 80 Year
  Sex: Female

DRUGS (6)
  1. METHOTREXATE [Suspect]
     Active Substance: METHOTREXATE
     Indication: Central nervous system lymphoma
     Dosage: METHOTREXATE AT 1.75G/M2 (50% DOSE REDUCTION OF REGULAR DOSE 3.5 G/M2)
     Route: 065
  2. TEMOZOLOMIDE [Concomitant]
     Active Substance: TEMOZOLOMIDE
     Indication: Central nervous system lymphoma
     Route: 065
  3. RITUXIMAB [Concomitant]
     Active Substance: RITUXIMAB
     Indication: Central nervous system lymphoma
     Route: 065
  4. RITUXIMAB [Concomitant]
     Active Substance: RITUXIMAB
     Dosage: 375 MG/M2 WEEKLY
     Route: 065
  5. DEXAMETHASONE [Concomitant]
     Active Substance: DEXAMETHASONE
     Indication: Central nervous system lymphoma
     Dosage: 8 MILLIGRAM DAILY; ORAL DEXAMETHASONE 4 MG TWICE DAILY WITH TAPER FOR 2 WEEKS
     Route: 048
  6. DEXAMETHASONE [Concomitant]
     Active Substance: DEXAMETHASONE
     Dosage: IV DEXAMETHASONE 20 MG WEEKLY WITH EACH RITUXIMAB TREATMENT
     Route: 042

REACTIONS (1)
  - Renal impairment [Unknown]
